FAERS Safety Report 15430923 (Version 1)
Quarter: 2018Q3

REPORT INFORMATION
  Report Type: Spontaneous
  Country: US (occurrence: US)
  Receive Date: 20180926
  Receipt Date: 20180926
  Transmission Date: 20181010
  Serious: No
  Sender: FDA-Public Use
  Company Number: US-INDIVIOR LIMITED-INDV-110942-2018

PATIENT
  Age: 48 Year
  Sex: Male

DRUGS (5)
  1. SUBOXONE [Suspect]
     Active Substance: BUPRENORPHINE HYDROCHLORIDE\NALOXONE HYDROCHLORIDE
     Indication: DRUG DEPENDENCE
     Dosage: UNK, 2 TO 3 FILMS
     Route: 060
  2. SUBOXONE [Suspect]
     Active Substance: BUPRENORPHINE HYDROCHLORIDE\NALOXONE HYDROCHLORIDE
     Dosage: 8 MG, TID (ONE FILM IN THE MORNING, ONE IN THE DAY AND ONE IN THE EVENING)
     Route: 060
  3. SUBOXONE [Suspect]
     Active Substance: BUPRENORPHINE HYDROCHLORIDE\NALOXONE HYDROCHLORIDE
     Dosage: 8 MG, TWO FILMS A DAY
     Route: 060
  4. SUBOXONE [Suspect]
     Active Substance: BUPRENORPHINE HYDROCHLORIDE\NALOXONE HYDROCHLORIDE
     Dosage: 8 MG, QD (IN THE MORNING)
     Route: 060
     Dates: start: 201805
  5. SUBOXONE [Suspect]
     Active Substance: BUPRENORPHINE HYDROCHLORIDE\NALOXONE HYDROCHLORIDE
     Dosage: 8 MG, ONE FILM A DAY
     Route: 060

REACTIONS (13)
  - Adverse event [Unknown]
  - Intentional product use issue [Recovered/Resolved]
  - Tachyphrenia [Unknown]
  - Feeling abnormal [Unknown]
  - Thinking abnormal [Unknown]
  - Mental impairment [Unknown]
  - Anxiety [Unknown]
  - Drug ineffective [Unknown]
  - Therapy cessation [Recovered/Resolved]
  - Intentional underdose [Unknown]
  - Intentional product misuse [Recovered/Resolved]
  - Drug withdrawal syndrome [Unknown]
  - Disturbance in attention [Unknown]
